FAERS Safety Report 13981241 (Version 1)
Quarter: 2017Q3

REPORT INFORMATION
  Report Type: Report from Study
  Country: None (occurrence: US)
  Receive Date: 20170918
  Receipt Date: 20170918
  Transmission Date: 20171128
  Serious: Yes (Other)
  Sender: FDA-Public Use
  Company Number: US-ABBVIE-16K-163-1765614-00

PATIENT
  Sex: Female

DRUGS (2)
  1. HUMIRA [Suspect]
     Active Substance: ADALIMUMAB
     Indication: PSORIASIS
     Dosage: DAY ONE
     Route: 058
     Dates: start: 20161024, end: 20161024
  2. HUMIRA [Suspect]
     Active Substance: ADALIMUMAB
     Indication: PSORIATIC ARTHROPATHY
     Route: 058
     Dates: start: 20161031

REACTIONS (16)
  - Injection site bruising [Recovered/Resolved]
  - Drug ineffective [Unknown]
  - Hepatic cirrhosis [Unknown]
  - Fatigue [Not Recovered/Not Resolved]
  - Impaired quality of life [Not Recovered/Not Resolved]
  - Nasal congestion [Recovering/Resolving]
  - Cellulitis [Unknown]
  - Viral upper respiratory tract infection [Recovered/Resolved]
  - Psoriasis [Recovering/Resolving]
  - General physical condition abnormal [Unknown]
  - Skin exfoliation [Recovering/Resolving]
  - Dizziness [Not Recovered/Not Resolved]
  - Erythema [Recovering/Resolving]
  - Pruritus generalised [Recovering/Resolving]
  - Injection site pain [Not Recovered/Not Resolved]
  - Arthralgia [Unknown]

NARRATIVE: CASE EVENT DATE: 2016
